FAERS Safety Report 13510749 (Version 2)
Quarter: 2017Q2

REPORT INFORMATION
  Report Type: Spontaneous
  Country: MA (occurrence: MA)
  Receive Date: 20170503
  Receipt Date: 20170530
  Transmission Date: 20170830
  Serious: Yes (Death, Hospitalization)
  Sender: FDA-Public Use
  Company Number: MA-PFIZER INC-2017189275

PATIENT
  Sex: Male

DRUGS (1)
  1. XALKORI [Suspect]
     Active Substance: CRIZOTINIB
     Indication: NEUROENDOCRINE TUMOUR OF THE LUNG
     Dosage: UNK

REACTIONS (4)
  - Performance status decreased [Unknown]
  - Neoplasm progression [Fatal]
  - Proteinuria [Unknown]
  - Oedema [Unknown]
